FAERS Safety Report 21501543 (Version 2)
Quarter: 2022Q4

REPORT INFORMATION
  Report Type: Report from Study
  Country: IE (occurrence: IE)
  Receive Date: 20221025
  Receipt Date: 20221107
  Transmission Date: 20230113
  Serious: Yes (Other)
  Sender: FDA-Public Use
  Company Number: IE-BRISTOL-MYERS SQUIBB COMPANY-2022-124879

PATIENT
  Age: 73 Year
  Sex: Female

DRUGS (3)
  1. NIVOLUMAB [Suspect]
     Active Substance: NIVOLUMAB
     Indication: Malignant melanoma
     Route: 065
     Dates: start: 20211116
  2. NIVOLUMAB [Suspect]
     Active Substance: NIVOLUMAB
     Route: 065
     Dates: start: 20221004
  3. IPILIMUMAB [Suspect]
     Active Substance: IPILIMUMAB
     Indication: Malignant melanoma
     Route: 065
     Dates: start: 20211116

REACTIONS (1)
  - Neck mass [Recovered/Resolved]

NARRATIVE: CASE EVENT DATE: 20220901
